FAERS Safety Report 7502132-8 (Version None)
Quarter: 2011Q2

REPORT INFORMATION
  Report Type: 
  Country: None (occurrence: None)
  Receive Date: 20110525
  Receipt Date: 20110518
  Transmission Date: 20111010
  Serious: Yes (Other)
  Sender: FDA-Public Use
  Company Number: US-PFIZER INC-2011060116

PATIENT
  Sex: Female

DRUGS (5)
  1. SUTENT [Suspect]
     Dosage: 50 MG, 1X/DAY
     Dates: start: 20110407
  2. SUTENT [Suspect]
     Dosage: 12.5 MG 3X/DAY
     Dates: start: 20110427, end: 20110517
  3. AUGMENTIN [Concomitant]
     Indication: CELLULITIS
     Dosage: FOR SEVEN DAYS
     Dates: start: 20110314
  4. LOVENOX [Concomitant]
     Indication: THROMBOSIS
     Dosage: UNK
  5. SUTENT [Suspect]
     Indication: METASTATIC RENAL CELL CARCINOMA
     Dosage: 50 MG, DAILY X 28 DAYS Q 42 DAYS
     Dates: start: 20110314, end: 20110404

REACTIONS (2)
  - LYMPH GLAND INFECTION [None]
  - HYPOTHYROIDISM [None]
